FAERS Safety Report 21209484 (Version 2)
Quarter: 2022Q3

REPORT INFORMATION
  Report Type: Spontaneous
  Country: JP (occurrence: JP)
  Receive Date: 20220813
  Receipt Date: 20220901
  Transmission Date: 20221026
  Serious: Yes (Hospitalization, Other)
  Sender: FDA-Public Use
  Company Number: JP-Nexus Pharma-000128

PATIENT
  Age: 32 Year
  Sex: Female

DRUGS (1)
  1. TESTOSTERONE ENANTHATE [Suspect]
     Active Substance: TESTOSTERONE ENANTHATE
     Indication: Gender dysphoria
     Dosage: ONCE EVERY 2 WEEKS

REACTIONS (1)
  - Hepatic adenoma [Recovered/Resolved]
